FAERS Safety Report 7834122-X (Version None)
Quarter: 2011Q4

REPORT INFORMATION
  Report Type: 
  Country: None (occurrence: None)
  Receive Date: 20111024
  Receipt Date: 20111011
  Transmission Date: 20120403
  Serious: Yes (Hospitalization, Other)
  Sender: FDA-Public Use
  Company Number: PHHY2011VE88628

PATIENT
  Sex: Female

DRUGS (5)
  1. XARELTO [Concomitant]
     Indication: PULMONARY THROMBOSIS
     Dosage: UNK UKN, UNK
  2. ACABEL [Concomitant]
     Dosage: 8 MG, UNK
  3. ZOLEDRONOC ACID [Suspect]
     Indication: OSTEOPOROSIS
     Dosage: 5 MG, UNK
     Route: 042
     Dates: start: 20110101
  4. TRASLAN [Concomitant]
     Dosage: UNK UKN, UNK
  5. CALCIUM CARBONATE [Concomitant]
     Dosage: 1250 MG, UNK

REACTIONS (3)
  - LYMPHOEDEMA [None]
  - HAEMOGLOBIN DECREASED [None]
  - HIP FRACTURE [None]
